FAERS Safety Report 24716148 (Version 1)
Quarter: 2024Q4

REPORT INFORMATION
  Report Type: Spontaneous
  Country: US (occurrence: US)
  Receive Date: 20241210
  Receipt Date: 20241210
  Transmission Date: 20250115
  Serious: Yes (Death, Hospitalization)
  Sender: SS PHARMA LLC
  Company Number: US-SSPHARMA-2024USSSP00086

PATIENT
  Sex: Female

DRUGS (1)
  1. CALCITRIOL [Suspect]
     Active Substance: CALCITRIOL
     Indication: Hypocalcaemia
     Route: 042

REACTIONS (3)
  - Myocardial calcification [Fatal]
  - Mitral valve calcification [Fatal]
  - Myocardial fibrosis [Fatal]
